FAERS Safety Report 20603206 (Version 1)
Quarter: 2022Q1

REPORT INFORMATION
  Report Type: Report from Study
  Country: CO (occurrence: CO)
  Receive Date: 20220316
  Receipt Date: 20220316
  Transmission Date: 20220423
  Serious: Yes (Disabling)
  Sender: FDA-Public Use
  Company Number: CO-TAKEDA-CO202032749

PATIENT
  Age: 14 Year
  Sex: Male
  Weight: 29 kg

DRUGS (2)
  1. IDURSULFASE [Suspect]
     Active Substance: IDURSULFASE
     Indication: Mucopolysaccharidosis II
     Dosage: 15 MILLIGRAM, 1/WEEK
     Route: 042
     Dates: start: 20110101
  2. IDURSULFASE [Suspect]
     Active Substance: IDURSULFASE
     Dosage: UNK
     Route: 042
     Dates: start: 20200605

REACTIONS (8)
  - Dysstasia [Unknown]
  - Pain in extremity [Not Recovered/Not Resolved]
  - Weight decreased [Recovered/Resolved]
  - Weight increased [Unknown]
  - Off label use [Unknown]
  - Inappropriate schedule of product administration [Unknown]
  - Fall [Unknown]
  - Limb deformity [Unknown]

NARRATIVE: CASE EVENT DATE: 20200923
